FAERS Safety Report 7420262-6 (Version None)
Quarter: 2011Q2

REPORT INFORMATION
  Report Type: 
  Country: None (occurrence: None)
  Receive Date: 20110418
  Receipt Date: 20110406
  Transmission Date: 20111010
  Serious: Yes (Other)
  Sender: FDA-Public Use
  Company Number: US-JNJFOC-20110404440

PATIENT
  Sex: Female

DRUGS (1)
  1. TYLOX [Suspect]
     Indication: PRODUCT USED FOR UNKNOWN INDICATION
     Route: 048

REACTIONS (4)
  - EMOTIONAL DISORDER [None]
  - GALLBLADDER DISORDER [None]
  - DRUG HYPERSENSITIVITY [None]
  - CONTRAINDICATION TO MEDICAL TREATMENT [None]
